FAERS Safety Report 7232862-7 (Version None)
Quarter: 2011Q1

REPORT INFORMATION
  Report Type: 
  Country: None (occurrence: None)
  Receive Date: 20110119
  Receipt Date: 20110106
  Transmission Date: 20110831
  Serious: No
  Sender: FDA-Public Use
  Company Number: US-B.I. PHARMACEUTICALS,INC./RIDGEFIELD-2011-BP-00719BP

PATIENT
  Sex: Female

DRUGS (15)
  1. CHEMOTHERAPY [Concomitant]
     Indication: LUNG NEOPLASM MALIGNANT
     Dates: start: 20101001
  2. MULTIVITAMIN [Concomitant]
     Indication: PROPHYLAXIS
  3. OXYCODONE [Concomitant]
     Indication: PAIN
     Dates: start: 20101001
  4. FIBERCON [Concomitant]
     Indication: CONSTIPATION
  5. ASA [Concomitant]
     Indication: PROPHYLAXIS
  6. LIPITOR [Concomitant]
     Indication: BLOOD CHOLESTEROL INCREASED
  7. CO Q 10 [Concomitant]
     Indication: PROPHYLAXIS
  8. AMBIEN [Concomitant]
     Indication: SLEEP DISORDER
  9. LOVAZA [Concomitant]
     Indication: PROPHYLAXIS
  10. PRADAXA [Suspect]
     Indication: ATRIAL FIBRILLATION
     Dosage: 300 MG
     Route: 048
     Dates: start: 20101201
  11. TOPROL-XL [Suspect]
     Indication: HEART RATE ABNORMAL
     Dates: start: 20101201
  12. COBRANEX [Concomitant]
     Indication: HYSTERECTOMY
  13. DILTIAZEM [Suspect]
     Indication: HEART RATE ABNORMAL
     Dates: start: 20101201
  14. STOOL SOFTNER [Concomitant]
     Indication: CONSTIPATION
  15. TRAZODONE HCL [Concomitant]
     Indication: SLEEP DISORDER

REACTIONS (2)
  - NAUSEA [None]
  - ARTHRALGIA [None]
